FAERS Safety Report 5057511-8 (Version None)
Quarter: 2006Q3

REPORT INFORMATION
  Report Type: 
  Country: None (occurrence: None)
  Receive Date: 20060721
  Receipt Date: 20051101
  Transmission Date: 20061208
  Serious: Yes (Other)
  Sender: FDA-Public Use
  Company Number: US-GLAXOSMITHKLINE-A0580488A

PATIENT
  Sex: Male

DRUGS (10)
  1. AVANDIA [Suspect]
     Dosage: 4MG PER DAY
     Route: 048
     Dates: start: 20050301
  2. METFORMIN [Concomitant]
  3. GLYBURIDE [Concomitant]
  4. DIURETIC [Concomitant]
  5. NEXIUM [Concomitant]
  6. GEMFIBROZIL [Concomitant]
  7. TOPROL-XL [Concomitant]
  8. LANOXIN [Concomitant]
  9. COUMADIN [Concomitant]
  10. FUROSEMIDE [Concomitant]

REACTIONS (2)
  - HYPOGLYCAEMIA [None]
  - WEIGHT INCREASED [None]
